FAERS Safety Report 7865116-6 (Version None)
Quarter: 2011Q4

REPORT INFORMATION
  Report Type: 
  Country: None (occurrence: None)
  Receive Date: 20111028
  Receipt Date: 20101018
  Transmission Date: 20120403
  Serious: No
  Sender: FDA-Public Use
  Company Number: US-GLAXOSMITHKLINE-A0887385A

PATIENT
  Sex: Female

DRUGS (6)
  1. GLYBURIDE [Concomitant]
  2. ALBUTEROL [Concomitant]
  3. ADVAIR DISKUS 100/50 [Suspect]
     Indication: ASTHMA
     Dosage: 1PUFF TWICE PER DAY
     Route: 055
  4. LIPITOR [Concomitant]
  5. JANUVIA [Concomitant]
  6. DIOVAN [Concomitant]

REACTIONS (3)
  - NAUSEA [None]
  - PRODUCT QUALITY ISSUE [None]
  - DYSPNOEA [None]
